FAERS Safety Report 5677380-2 (Version None)
Quarter: 2008Q1

REPORT INFORMATION
  Report Type: 
  Country: None (occurrence: None)
  Receive Date: 20080320
  Receipt Date: 20080320
  Transmission Date: 20080703
  Serious: Yes (Hospitalization)
  Sender: FDA-Public Use
  Company Number: None

PATIENT
  Age: 85 Year
  Sex: Male
  Weight: 76 kg

DRUGS (2)
  1. CLINDAMYCIN UNKNOWN UNKNOWN [Suspect]
     Indication: TOOTHACHE
     Dosage: PO
     Route: 048
  2. HYDROCHLOROTHIAZIDE [Suspect]
     Indication: HYPERTENSION
     Dosage: 25 MG   DAILY   PO
     Route: 048

REACTIONS (5)
  - DIARRHOEA [None]
  - HYPONATRAEMIA [None]
  - HYPOVOLAEMIA [None]
  - NAUSEA [None]
  - VOMITING [None]
